FAERS Safety Report 17618641 (Version 1)
Quarter: 2020Q2

REPORT INFORMATION
  Report Type: Spontaneous
  Country: DE (occurrence: DE)
  Receive Date: 20200402
  Receipt Date: 20200402
  Transmission Date: 20200713
  Serious: Yes (Death, Other)
  Sender: FDA-Public Use
  Company Number: DE-009507513-1910DEU007257

PATIENT
  Age: 60 Year
  Sex: Male

DRUGS (3)
  1. NINTEDANIB [Suspect]
     Active Substance: NINTEDANIB
     Dosage: UNK
     Dates: start: 20180201, end: 20180301
  2. DOCETAXEL. [Suspect]
     Active Substance: DOCETAXEL
     Dosage: UNK
     Dates: start: 20180201, end: 20180301
  3. PEMBROLIZUMAB. [Suspect]
     Active Substance: PEMBROLIZUMAB
     Dosage: UNK
     Dates: start: 20171206, end: 20180117

REACTIONS (4)
  - Adverse event [Unknown]
  - Death [Fatal]
  - Malignant neoplasm progression [Unknown]
  - General physical health deterioration [Unknown]

NARRATIVE: CASE EVENT DATE: 2018
